FAERS Safety Report 11833997 (Version 1)
Quarter: 2015Q4

REPORT INFORMATION
  Report Type: Spontaneous
  Country: US (occurrence: US)
  Receive Date: 20151214
  Receipt Date: 20151214
  Transmission Date: 20160305
  Serious: Yes (Hospitalization, Other)
  Sender: FDA-Public Use
  Company Number: US-B.I. PHARMACEUTICALS,INC./RIDGEFIELD-2015-BI-69783BP

PATIENT
  Age: 64 Year
  Sex: Female
  Weight: 90.71 kg

DRUGS (1)
  1. COMBIVENT [Suspect]
     Active Substance: ALBUTEROL SULFATE\IPRATROPIUM BROMIDE
     Indication: PRODUCT USED FOR UNKNOWN INDICATION
     Dosage: DOSE PER APPLICATION: 20 MCG / 100 MCG
     Route: 055
     Dates: start: 20151101

REACTIONS (3)
  - Pulmonary oedema [Unknown]
  - Pulmonary fibrosis [Unknown]
  - Hypoxia [Unknown]

NARRATIVE: CASE EVENT DATE: 20151125
